FAERS Safety Report 4362423-9 (Version None)
Quarter: 2004Q2

REPORT INFORMATION
  Report Type: 
  Country: None (occurrence: None)
  Receive Date: 20040521
  Receipt Date: 20031203
  Transmission Date: 20050107
  Serious: Yes (Disabling)
  Sender: FDA-Public Use
  Company Number: IT-BRISTOL-MYERS SQUIBB COMPANY-12450359

PATIENT
  Age: 60 Year
  Sex: Male

DRUGS (3)
  1. APROVEL TABS 150 MG [Suspect]
     Route: 048
  2. CHOLESTEROL MEDICATION [Suspect]
     Route: 048
  3. COUMADIN [Concomitant]
     Indication: AORTIC VALVE REPLACEMENT

REACTIONS (1)
  - DERMATOMYOSITIS [None]
